FAERS Safety Report 12473083 (Version 5)
Quarter: 2017Q1

REPORT INFORMATION
  Report Type: Spontaneous
  Country: NL (occurrence: NL)
  Receive Date: 20160616
  Receipt Date: 20170327
  Transmission Date: 20170428
  Serious: Yes (Death, Other)
  Sender: FDA-Public Use
  Company Number: NL-PFIZER INC-2015302594

PATIENT
  Age: 60 Year
  Sex: Male

DRUGS (23)
  1. SOMAVERT [Suspect]
     Active Substance: PEGVISOMANT
     Dosage: 60 MG, 2X/WEEK
     Route: 058
     Dates: start: 20120703
  2. SOMATULINE /01330101/ [Concomitant]
     Active Substance: LANREOTIDE ACETATE
     Dosage: 120 MG, 1X/28 DAYS
  3. ENALAPRIL [Concomitant]
     Active Substance: ENALAPRIL
     Dosage: 10 MG, 2X/DAY
     Route: 048
  4. LANREOTIDE [Concomitant]
     Active Substance: LANREOTIDE
     Dosage: 120 MG=0.4 ML (300 MG/ML), 1X/EVERY 4 WEEKS
     Route: 058
  5. METFORMINE [Concomitant]
     Active Substance: METFORMIN HYDROCHLORIDE
     Dosage: 1000 MG, 3X/DAY
     Route: 048
  6. PASIREOTIDE [Concomitant]
     Active Substance: PASIREOTIDE
     Dosage: 60 MG, 1X/EVERY 4 WEEKS
     Route: 058
  7. SOMAVERT [Suspect]
     Active Substance: PEGVISOMANT
     Dosage: 30 MG, 3X/WEEK
     Route: 058
     Dates: start: 20160411
  8. INSULINE ASPARTATE [Concomitant]
     Dosage: 300E=3ML (100E/ML)
     Route: 058
  9. SOMAVERT [Suspect]
     Active Substance: PEGVISOMANT
     Dosage: 90 MG, WEEKLY
     Route: 058
     Dates: start: 20160530
  10. SOMAVERT [Suspect]
     Active Substance: PEGVISOMANT
     Dosage: 50 MG, 1X/WEEK (ON SUNDAY)
     Route: 058
  11. SOMAVERT [Suspect]
     Active Substance: PEGVISOMANT
     Dosage: 30 MG, 1X/WEEK
     Route: 058
  12. SOMAVERT [Suspect]
     Active Substance: PEGVISOMANT
     Dosage: 60 MG, 1X/WEEK
     Route: 058
     Dates: start: 20151008
  13. SOMAVERT [Suspect]
     Active Substance: PEGVISOMANT
     Dosage: 120 MG, 1X/WEEK
     Route: 058
  14. TIOTROPIUM [Concomitant]
     Active Substance: TIOTROPIUM
     Dosage: 18 UG, 1X/DAY
     Route: 055
  15. SOMAVERT [Suspect]
     Active Substance: PEGVISOMANT
     Dosage: 80 MG, 2X/WEEK
     Route: 058
     Dates: start: 20151018
  16. INSULINE GLARGINE [Concomitant]
     Active Substance: INSULIN GLARGINE
     Dosage: 300E=3ML (100E/ML)
     Route: 058
  17. SIMVASTATINE [Concomitant]
     Active Substance: SIMVASTATIN
     Dosage: 40 MG, 1X/DAY
     Route: 048
  18. SOMAVERT [Suspect]
     Active Substance: PEGVISOMANT
     Indication: ACROMEGALY
     Dosage: UNK
     Route: 058
     Dates: start: 20110207
  19. SOMAVERT [Suspect]
     Active Substance: PEGVISOMANT
     Dosage: 40 MG, 1X/WEEK (ON SUNDAY)
     Route: 058
  20. SOMAVERT [Suspect]
     Active Substance: PEGVISOMANT
     Dosage: 60 MG, 1X/WEEK
     Route: 058
  21. SOMAVERT [Suspect]
     Active Substance: PEGVISOMANT
     Dosage: 80 MG, 2X/WEEK
     Route: 058
  22. ENALAPRIL [Concomitant]
     Active Substance: ENALAPRIL
     Dosage: 20 MG, 2X/DAY
  23. HYDROCHLOORTHIAZIDE [Concomitant]
     Active Substance: HYDROCHLOROTHIAZIDE
     Dosage: 12.5 MG, 1X/DAY
     Route: 048

REACTIONS (3)
  - Off label use [Unknown]
  - Blood glucose increased [Unknown]
  - Myocardial infarction [Fatal]

NARRATIVE: CASE EVENT DATE: 20110207
